FAERS Safety Report 14132089 (Version 1)
Quarter: 2017Q4

REPORT INFORMATION
  Report Type: Spontaneous
  Country: JP (occurrence: JP)
  Receive Date: 20171026
  Receipt Date: 20171026
  Transmission Date: 20180321
  Serious: Yes (Hospitalization)
  Sender: FDA-Public Use
  Company Number: JP-JNJFOC-20171027538

PATIENT
  Age: 75 Year
  Sex: Male

DRUGS (1)
  1. TRAMCET [Suspect]
     Active Substance: ACETAMINOPHEN\TRAMADOL
     Indication: PAIN
     Dosage: ONE TABLET IN THE MORNING AND TWO TABLETS IN THE EVENING
     Route: 048
     Dates: start: 20130930

REACTIONS (1)
  - Intestinal obstruction [Unknown]

NARRATIVE: CASE EVENT DATE: 20131004
